FAERS Safety Report 21474953 (Version 1)
Quarter: 2022Q4

REPORT INFORMATION
  Report Type: Report from Study
  Country: US (occurrence: US)
  Receive Date: 20221019
  Receipt Date: 20221019
  Transmission Date: 20230113
  Serious: No
  Sender: FDA-Public Use
  Company Number: US-ABBVIE-4158025

PATIENT
  Sex: Male

DRUGS (2)
  1. SKYRIZI [Suspect]
     Active Substance: RISANKIZUMAB-RZAA
     Indication: Psoriasis
     Dosage: FORM STRENGTH 150 MG?WEEK 0
     Route: 058
     Dates: start: 20220808, end: 20220808
  2. SKYRIZI [Suspect]
     Active Substance: RISANKIZUMAB-RZAA
     Dosage: FORM STRENGTH 150 MG?WEEK 4
     Route: 058
     Dates: start: 20220905, end: 20220905

REACTIONS (1)
  - Polyuria [Unknown]

NARRATIVE: CASE EVENT DATE: 20220101
